FAERS Safety Report 6977350-8 (Version None)
Quarter: 2010Q3

REPORT INFORMATION
  Report Type: 
  Country: None (occurrence: None)
  Receive Date: 20100910
  Receipt Date: 20100901
  Transmission Date: 20110219
  Serious: Yes (Other)
  Sender: FDA-Public Use
  Company Number: US-PFIZER INC-2010042249

PATIENT
  Sex: Female

DRUGS (2)
  1. CHANTIX [Suspect]
     Indication: SMOKING CESSATION THERAPY
     Dosage: UNK
     Route: 048
     Dates: start: 20070906, end: 20071101
  2. CHANTIX [Suspect]
     Dosage: 1 MG, UNK (MONTHLY PACK)
     Route: 048
     Dates: start: 20071210, end: 20080101

REACTIONS (9)
  - ABNORMAL DREAMS [None]
  - AGGRESSION [None]
  - AMNESIA [None]
  - ANXIETY [None]
  - DEPRESSION [None]
  - HALLUCINATION, VISUAL [None]
  - HEADACHE [None]
  - MENTAL DISORDER [None]
  - PARANOIA [None]
